FAERS Safety Report 8606589-0 (Version None)
Quarter: 2012Q3

REPORT INFORMATION
  Report Type: 
  Country: None (occurrence: None)
  Receive Date: 20120820
  Receipt Date: 20120803
  Transmission Date: 20120928
  Serious: No
  Sender: FDA-Public Use
  Company Number: US-ASTRAZENECA-2012SE38041

PATIENT
  Age: 68 Year
  Sex: Male
  Weight: 95.3 kg

DRUGS (11)
  1. SYMBICORT [Suspect]
     Dosage: 160/4.5 MCG TWO INHALATION, ONCE DAILY
     Route: 055
     Dates: start: 20100101
  2. ASPIRIN [Concomitant]
  3. TAMOSULOSIN [Concomitant]
     Indication: PROSTATOMEGALY
  4. SYMBICORT [Suspect]
     Indication: BRONCHITIS
     Dosage: 160/4.5 MCG TWO PUFFS TWO TIMES A DAY
     Route: 055
     Dates: start: 20080101
  5. PRAVASTATIN SODIUM [Concomitant]
     Indication: BLOOD CHOLESTEROL INCREASED
  6. LEVOTHYROXINE SODIUM [Concomitant]
     Indication: THYROID DISORDER
  7. SYMBICORT [Suspect]
     Dosage: 160/4.5 MCG TWO PUFFS IN THE MORNING
     Route: 055
  8. SYMBICORT [Suspect]
     Indication: EXPOSURE TO MOULD
     Dosage: 160/4.5 MCG TWO PUFFS TWO TIMES A DAY
     Route: 055
     Dates: start: 20080101
  9. SYMBICORT [Suspect]
     Dosage: 160/4.5 MCG TWO PUFFS IN THE MORNING
     Route: 055
  10. SYMBICORT [Suspect]
     Dosage: 160/4.5 MCG TWO INHALATION, ONCE DAILY
     Route: 055
     Dates: start: 20100101
  11. LISINOPRIL [Concomitant]
     Indication: BLOOD PRESSURE ABNORMAL

REACTIONS (6)
  - INTENTIONAL DRUG MISUSE [None]
  - PROSTATOMEGALY [None]
  - BODY HEIGHT DECREASED [None]
  - DRUG EFFECT DECREASED [None]
  - DYSPNOEA [None]
  - OFF LABEL USE [None]
